FAERS Safety Report 17764974 (Version 1)
Quarter: 2020Q2

REPORT INFORMATION
  Report Type: Spontaneous
  Country: DE (occurrence: DE)
  Receive Date: 20200511
  Receipt Date: 20200511
  Transmission Date: 20200714
  Serious: Yes (Death)
  Sender: FDA-Public Use
  Company Number: NVSC2020DE126567

PATIENT

DRUGS (5)
  1. KISQALI [Suspect]
     Active Substance: RIBOCICLIB
     Dosage: UNK (3X WHV68 12/20)
     Route: 065
     Dates: start: 2017
  2. KISQALI [Suspect]
     Active Substance: RIBOCICLIB
     Dosage: UNK (2X WKA55 03/21)
     Route: 065
     Dates: start: 2017
  3. KISQALI [Suspect]
     Active Substance: RIBOCICLIB
     Dosage: UNK (2X WFL64 07/20)
     Route: 065
     Dates: start: 2017
  4. KISQALI [Suspect]
     Active Substance: RIBOCICLIB
     Indication: PRODUCT USED FOR UNKNOWN INDICATION
     Dosage: UNK (1X WV180 05/19)
     Route: 065
     Dates: start: 2017
  5. KISQALI [Suspect]
     Active Substance: RIBOCICLIB
     Dosage: UNK
     Route: 065
     Dates: start: 2017

REACTIONS (2)
  - Death [Fatal]
  - Product use issue [Unknown]
